FAERS Safety Report 7318584-2 (Version None)
Quarter: 2011Q1

REPORT INFORMATION
  Report Type: 
  Country: None (occurrence: None)
  Receive Date: 20110218
  Receipt Date: 20110218
  Transmission Date: 20110831
  Serious: No
  Sender: FDA-Public Use
  Company Number: None

PATIENT
  Age: 39 Year
  Sex: Female
  Weight: 56.6996 kg

DRUGS (1)
  1. CLOMID [Suspect]
     Indication: INFERTILITY
     Dosage: 50MG 3X DAILY PO
     Route: 048
     Dates: start: 20100721, end: 20100726

REACTIONS (1)
  - PHOTOPSIA [None]
